FAERS Safety Report 18843254 (Version 1)
Quarter: 2021Q1

REPORT INFORMATION
  Report Type: Report from Study
  Country: US (occurrence: US)
  Receive Date: 20210203
  Receipt Date: 20210203
  Transmission Date: 20210419
  Serious: No
  Sender: FDA-Public Use
  Company Number: US-EXELIXIS-CABO-19026181

PATIENT
  Age: 62 Year
  Sex: Female

DRUGS (1)
  1. CABOMETYX [Suspect]
     Active Substance: CABOZANTINIB S-MALATE
     Indication: GENITOURINARY TRACT NEOPLASM
     Dosage: 60 MG

REACTIONS (4)
  - Drug ineffective [Unknown]
  - Off label use [Unknown]
  - Adverse drug reaction [Unknown]
  - Thrombosis [Unknown]

NARRATIVE: CASE EVENT DATE: 201909
